FAERS Safety Report 6530773-3 (Version None)
Quarter: 2010Q1

REPORT INFORMATION
  Report Type: 
  Country: None (occurrence: None)
  Receive Date: 20100108
  Receipt Date: 20090128
  Transmission Date: 20100710
  Serious: No
  Sender: FDA-Public Use
  Company Number: A0766727A

PATIENT
  Age: 49 Year
  Sex: Male
  Weight: 63.6 kg

DRUGS (4)
  1. LOVAZA [Suspect]
     Indication: DRUG USE FOR UNKNOWN INDICATION
     Route: 048
     Dates: start: 20081101, end: 20081201
  2. NIASPAN [Suspect]
     Indication: HIGH DENSITY LIPOPROTEIN
     Dosage: 500MG PER DAY
     Route: 048
     Dates: start: 20080601, end: 20080901
  3. ACETYLSALICYLIC ACID [Concomitant]
  4. FISH OIL [Concomitant]

REACTIONS (1)
  - HIGH DENSITY LIPOPROTEIN DECREASED [None]
